FAERS Safety Report 9991480 (Version 1)
Quarter: 2014Q1

REPORT INFORMATION
  Report Type: Spontaneous
  Country: US (occurrence: US)
  Receive Date: 20140310
  Receipt Date: 20140310
  Transmission Date: 20141002
  Serious: Yes (Hospitalization)
  Sender: FDA-Public Use
  Company Number: US-IPSEN BIOPHARMACEUTICALS, INC.-2014-1065

PATIENT
  Age: 12 Year
  Sex: Female

DRUGS (3)
  1. INCRELEX [Suspect]
     Indication: GROWTH HORMONE DEFICIENCY
     Dosage: NOT REPORTED
     Route: 065
  2. INCRELEX [Suspect]
     Indication: INTESTINAL NEURONAL DYSPLASIA
  3. INCRELEX [Suspect]
     Indication: OFF LABEL USE

REACTIONS (3)
  - Intestinal neuronal dysplasia [Unknown]
  - Condition aggravated [Unknown]
  - Expired drug administered [Unknown]
